FAERS Safety Report 4530408-5 (Version None)
Quarter: 2004Q4

REPORT INFORMATION
  Report Type: 
  Country: None (occurrence: None)
  Receive Date: 20041215
  Receipt Date: 20041202
  Transmission Date: 20050328
  Serious: No
  Sender: FDA-Public Use
  Company Number: 2004AP06123

PATIENT
  Age: 70 Year
  Sex: Female

DRUGS (1)
  1. OMEPRAL [Suspect]
     Indication: REFLUX OESOPHAGITIS
     Dosage: 20 MG DAILY PO
     Route: 048

REACTIONS (2)
  - BLOOD GASTRIN INCREASED [None]
  - GASTRITIS [None]
